FAERS Safety Report 16199408 (Version 1)
Quarter: 2019Q2

REPORT INFORMATION
  Report Type: Report from Study
  Country: BR (occurrence: BR)
  Receive Date: 20190415
  Receipt Date: 20190415
  Transmission Date: 20190711
  Serious: Yes (Other)
  Sender: FDA-Public Use
  Company Number: PHHY2019BR086075

PATIENT
  Sex: Female

DRUGS (1)
  1. ACLASTA [Suspect]
     Active Substance: ZOLEDRONIC ACID
     Indication: PRODUCT USED FOR UNKNOWN INDICATION
     Dosage: UNK
     Route: 065
     Dates: start: 20180423

REACTIONS (8)
  - Bone callus excessive [Unknown]
  - Abdominal pain upper [Unknown]
  - Femur fracture [Unknown]
  - Somnolence [Unknown]
  - Hiatus hernia [Unknown]
  - Reflux gastritis [Unknown]
  - Gastric polyps [Unknown]
  - Cough [Unknown]

NARRATIVE: CASE EVENT DATE: 20190408
